FAERS Safety Report 5361955-4 (Version None)
Quarter: 2007Q2

REPORT INFORMATION
  Report Type: 
  Country: None (occurrence: None)
  Receive Date: 20070619
  Receipt Date: 20070608
  Transmission Date: 20071010
  Serious: Yes (Hospitalization, Disabling)
  Sender: FDA-Public Use
  Company Number: DE-JNJFOC-20070505347

PATIENT
  Age: 57 Year
  Sex: Male

DRUGS (7)
  1. TAVANIC [Suspect]
     Indication: C-REACTIVE PROTEIN INCREASED
     Route: 048
  2. SANDIMMUNE [Suspect]
     Indication: ALLOGENIC BONE MARROW TRANSPLANTATION THERAPY
     Route: 048
  3. ACYCLOVIR [Concomitant]
     Indication: PROPHYLAXIS
     Route: 048
  4. CONCOR [Concomitant]
     Indication: BLOOD PRESSURE INCREASED
     Route: 048
  5. DAPSON [Concomitant]
     Indication: PROPHYLAXIS
     Route: 048
  6. DARAPRIM [Concomitant]
     Indication: INFECTION PROPHYLAXIS
     Route: 048
  7. FOLIC ACID [Concomitant]
     Indication: INFECTION PROPHYLAXIS
     Route: 048

REACTIONS (1)
  - BLINDNESS [None]
